FAERS Safety Report 5470676-9 (Version None)
Quarter: 2007Q3

REPORT INFORMATION
  Report Type: 
  Country: None (occurrence: None)
  Receive Date: 20070928
  Receipt Date: 20070918
  Transmission Date: 20080115
  Serious: Yes (Other)
  Sender: FDA-Public Use
  Company Number: US-ELI_LILLY_AND_COMPANY-US200709003778

PATIENT
  Age: 62 Year
  Sex: Female

DRUGS (1)
  1. FORTEO [Suspect]
     Indication: FEMUR FRACTURE

REACTIONS (3)
  - BLOOD CALCIUM INCREASED [None]
  - DEPENDENCE [None]
  - RENAL FAILURE [None]
